FAERS Safety Report 14640376 (Version 4)
Quarter: 2020Q4

REPORT INFORMATION
  Report Type: Spontaneous
  Country: US (occurrence: US)
  Receive Date: 20180315
  Receipt Date: 20201112
  Transmission Date: 20210113
  Serious: Yes (Other)
  Sender: FDA-Public Use
  Company Number: US-ASTRAZENECA-2018SE31906

PATIENT
  Age: 43 Year
  Sex: Male
  Weight: 151 kg

DRUGS (63)
  1. MAGNESIUM OXIDE. [Concomitant]
     Active Substance: MAGNESIUM OXIDE
  2. ESCITALOPRAM [Concomitant]
     Active Substance: ESCITALOPRAM OXALATE
     Dates: start: 20140501
  3. ALPRAZOLAM. [Concomitant]
     Active Substance: ALPRAZOLAM
  4. ZOLPIDEM [Concomitant]
     Active Substance: ZOLPIDEM TARTRATE
     Dates: start: 20140501
  5. MELOXICAM. [Concomitant]
     Active Substance: MELOXICAM
  6. OXYCODONE-ACETAMINOPHEN [Concomitant]
     Active Substance: ACETAMINOPHEN\OXYCODONE HYDROCHLORIDE
     Dates: start: 20140429
  7. FLUTICASONE. [Concomitant]
     Active Substance: FLUTICASONE
  8. NOVOLOG [Concomitant]
     Active Substance: INSULIN ASPART
     Dates: start: 20140323
  9. DAKIN [Concomitant]
  10. TRILIPIX [Concomitant]
     Active Substance: FENOFIBRIC ACID
  11. LYRICA [Concomitant]
     Active Substance: PREGABALIN
  12. PROMETHAZINE [Concomitant]
     Active Substance: PROMETHAZINE HYDROCHLORIDE
     Dates: start: 20140322
  13. CEPHALEXIN. [Concomitant]
     Active Substance: CEPHALEXIN
     Dates: start: 20140429
  14. PREVACID [Suspect]
     Active Substance: LANSOPRAZOLE
     Indication: HEADACHE
     Route: 065
     Dates: start: 2008, end: 2015
  15. PREVACID [Suspect]
     Active Substance: LANSOPRAZOLE
     Indication: HEADACHE
     Route: 065
     Dates: start: 20141203
  16. PRAMIPEXOLE. [Concomitant]
     Active Substance: PRAMIPEXOLE
     Dates: start: 20140322
  17. CLONOPIN [Concomitant]
     Active Substance: CLONAZEPAM
  18. CARBATROL [Concomitant]
     Active Substance: CARBAMAZEPINE
  19. ROLAIDS [Concomitant]
     Active Substance: CALCIUM CARBONATE\MAGNESIUM HYDROXIDE
  20. ANTIVERT [Concomitant]
     Active Substance: MECLIZINE HYDROCHLORIDE
  21. PRILOSEC [Suspect]
     Active Substance: OMEPRAZOLE MAGNESIUM
     Indication: GASTROOESOPHAGEAL REFLUX DISEASE
     Route: 048
  22. PREVACID [Suspect]
     Active Substance: LANSOPRAZOLE
     Indication: GASTROOESOPHAGEAL REFLUX DISEASE
     Dosage: GENERIC30.0MG UNKNOWN
     Route: 065
     Dates: start: 20140609
  23. METOPROLOL TARTRATE. [Concomitant]
     Active Substance: METOPROLOL TARTRATE
  24. CLONIDINE. [Concomitant]
     Active Substance: CLONIDINE
  25. PREDNISONE. [Concomitant]
     Active Substance: PREDNISONE
  26. NEXIUM [Suspect]
     Active Substance: ESOMEPRAZOLE MAGNESIUM
     Indication: GASTROOESOPHAGEAL REFLUX DISEASE
     Route: 048
     Dates: start: 2008, end: 2015
  27. PREVACID [Suspect]
     Active Substance: LANSOPRAZOLE
     Indication: HEADACHE
     Route: 065
     Dates: start: 20160531
  28. PREVACID [Suspect]
     Active Substance: LANSOPRAZOLE
     Indication: GASTROOESOPHAGEAL REFLUX DISEASE
     Route: 065
     Dates: start: 20141203
  29. HYDRALAZINE HCL [Concomitant]
     Active Substance: HYDRALAZINE HYDROCHLORIDE
  30. TRIBENZOR [Concomitant]
     Active Substance: AMLODIPINE BESYLATE\HYDROCHLOROTHIAZIDE\OLMESARTAN MEDOXOMIL
     Dates: start: 20140429
  31. RENVELA [Concomitant]
     Active Substance: SEVELAMER CARBONATE
  32. WARFARIN SODIUM. [Concomitant]
     Active Substance: WARFARIN SODIUM
  33. ASPIRIN. [Concomitant]
     Active Substance: ASPIRIN
  34. LEVEMIR [Concomitant]
     Active Substance: INSULIN DETEMIR
  35. PANTOPRAZOLE [Concomitant]
     Active Substance: PANTOPRAZOLE
     Dosage: 40.0MG UNKNOWN
     Route: 065
     Dates: start: 20140323
  36. ISOSORBIDE. [Concomitant]
     Active Substance: ISOSORBIDE
  37. PREVACID [Suspect]
     Active Substance: LANSOPRAZOLE
     Indication: GASTROOESOPHAGEAL REFLUX DISEASE
     Route: 065
     Dates: start: 2008, end: 2015
  38. LEVOTHYROXINE SODIUM. [Concomitant]
     Active Substance: LEVOTHYROXINE SODIUM
  39. FAMOTIDINE. [Concomitant]
     Active Substance: FAMOTIDINE
     Dates: start: 20140429
  40. ADALAT [Concomitant]
     Active Substance: NIFEDIPINE
  41. TOPAMAX [Concomitant]
     Active Substance: TOPIRAMATE
     Dates: start: 20140429
  42. LOPERAMIDE [Concomitant]
     Active Substance: LOPERAMIDE
  43. MORPHINE [Concomitant]
     Active Substance: MORPHINE
     Dates: start: 20140501
  44. PREVACID [Suspect]
     Active Substance: LANSOPRAZOLE
     Indication: GASTROOESOPHAGEAL REFLUX DISEASE
     Route: 065
     Dates: start: 20160531
  45. PREVACID [Suspect]
     Active Substance: LANSOPRAZOLE
     Indication: HEADACHE
     Dosage: GENERIC30.0MG UNKNOWN
     Route: 065
     Dates: start: 20140609
  46. ATORVASTATIN [Concomitant]
     Active Substance: ATORVASTATIN
  47. VANCOMYCIN [Concomitant]
     Active Substance: VANCOMYCIN
     Dates: start: 20140430
  48. HUMALOG [Concomitant]
     Active Substance: INSULIN LISPRO
  49. PROAIR HFA [Concomitant]
     Active Substance: ALBUTEROL SULFATE
  50. GABAPENTIN. [Concomitant]
     Active Substance: GABAPENTIN
  51. HYDROCODONE BITARTRATE AND ACETAMINOPHEN [Concomitant]
     Active Substance: ACETAMINOPHEN\HYDROCODONE BITARTRATE
     Dates: start: 20140322
  52. ZOSYN [Concomitant]
     Active Substance: PIPERACILLIN SODIUM\TAZOBACTAM SODIUM
  53. MORPHINE [Concomitant]
     Active Substance: MORPHINE
  54. MIDODRINE [Concomitant]
     Active Substance: MIDODRINE
     Dates: start: 20140501
  55. ONDANSETRON [Concomitant]
     Active Substance: ONDANSETRON
     Dates: start: 20140501
  56. NEXIUM [Suspect]
     Active Substance: ESOMEPRAZOLE MAGNESIUM
     Indication: GASTROOESOPHAGEAL REFLUX DISEASE
     Route: 048
     Dates: start: 20150815
  57. CLOPIDOGREL BISULFATE. [Concomitant]
     Active Substance: CLOPIDOGREL BISULFATE
  58. CARVEDILOL. [Concomitant]
     Active Substance: CARVEDILOL
     Dates: start: 20140323
  59. CRESTOR [Concomitant]
     Active Substance: ROSUVASTATIN CALCIUM
  60. PHENTERMINE. [Concomitant]
     Active Substance: PHENTERMINE
  61. INSULIN [Concomitant]
     Active Substance: INSULIN NOS
  62. MOTRIN [Concomitant]
     Active Substance: IBUPROFEN
  63. TUMS [Concomitant]
     Active Substance: CALCIUM CARBONATE

REACTIONS (6)
  - Renal failure [Not Recovered/Not Resolved]
  - Renal tubular necrosis [Unknown]
  - End stage renal disease [Unknown]
  - Chronic kidney disease [Unknown]
  - Nephrogenic anaemia [Unknown]
  - Acute kidney injury [Unknown]

NARRATIVE: CASE EVENT DATE: 2008
